FAERS Safety Report 25947660 (Version 2)
Quarter: 2025Q4

REPORT INFORMATION
  Report Type: Spontaneous
  Country: IR (occurrence: IR)
  Receive Date: 20251022
  Receipt Date: 20251027
  Transmission Date: 20260117
  Serious: Yes (Death)
  Sender: SANOFI AVENTIS
  Company Number: IR-SA-2025SA314098

PATIENT
  Age: 4 Year
  Sex: Female

DRUGS (1)
  1. MYOZYME [Suspect]
     Active Substance: ALGLUCOSIDASE ALFA
     Indication: Product used for unknown indication
     Dosage: UNK UNK, QM

REACTIONS (1)
  - Respiratory disorder [Fatal]
